FAERS Safety Report 9752526 (Version 1)
Quarter: 2013Q4

REPORT INFORMATION
  Report Type: Report from Study
  Country: ZA (occurrence: ZA)
  Receive Date: 20131213
  Receipt Date: 20131213
  Transmission Date: 20140711
  Serious: Yes (Hospitalization)
  Sender: FDA-Public Use
  Company Number: ZA-NOVOPROD-394394

PATIENT
  Age: 42 Year
  Sex: Male

DRUGS (1)
  1. NOVOMIX 30 FLEXPEN [Suspect]
     Indication: TYPE 2 DIABETES MELLITUS
     Dosage: 65 IU, QD 930IU BREAKFAST, 35IU NIGHT)
     Route: 065

REACTIONS (3)
  - Vomiting [Unknown]
  - Hiccups [Unknown]
  - Blood glucose increased [Unknown]
